FAERS Safety Report 17839704 (Version 3)
Quarter: 2020Q3

REPORT INFORMATION
  Report Type: Report from Study
  Country: BR (occurrence: BR)
  Receive Date: 20200529
  Receipt Date: 20200709
  Transmission Date: 20201103
  Serious: Yes (Life-Threatening, Other)
  Sender: FDA-Public Use
  Company Number: NVSC2020BR072607

PATIENT
  Age: 54 Year
  Sex: Male
  Weight: 58 kg

DRUGS (5)
  1. COSENTYX [Suspect]
     Active Substance: SECUKINUMAB
     Dosage: UNK
     Route: 065
     Dates: start: 20200316
  2. FLUOXETINE [Suspect]
     Active Substance: FLUOXETINE HYDROCHLORIDE
     Indication: DEPRESSION
     Dosage: UNK UNK, QD (10 YEARS AGO) (4 MONTHS AGO)
     Route: 048
  3. COSENTYX [Suspect]
     Active Substance: SECUKINUMAB
     Indication: PSORIASIS
     Dosage: UNK UNK, QMO (2 AMPOULES)
     Route: 065
     Dates: start: 20200117
  4. ENALAPRIL [Suspect]
     Active Substance: ENALAPRIL
     Indication: HYPERTENSION
     Dosage: 10 MG, UNKNOWN (1 TABLET IN THE MORNING AND 1 TABLET AT NIGHT) (MANY YEARS) (2 ? 3 MONTHS AGO)
     Route: 048
  5. ENALAPRIL [Suspect]
     Active Substance: ENALAPRIL
     Dosage: 20 MG, UNKNOWN (1 TABLET IN THE MORNING AND 1 TABLET AT NIGHT) (2 TO 3 MONTHS AGO) (ONGOING)
     Route: 048

REACTIONS (40)
  - Fear of injection [Unknown]
  - Dyspnoea [Recovered/Resolved]
  - Palpitations [Recovered/Resolved]
  - Chest pain [Not Recovered/Not Resolved]
  - Illusion [Recovered/Resolved]
  - Nausea [Unknown]
  - Fear [Unknown]
  - Panic attack [Recovered/Resolved]
  - Back pain [Not Recovered/Not Resolved]
  - Blood pressure increased [Recovered/Resolved]
  - Nervousness [Recovered/Resolved]
  - Self esteem decreased [Not Recovered/Not Resolved]
  - Fear of death [Recovered/Resolved]
  - Palpitations [Recovering/Resolving]
  - Feeding disorder [Recovered/Resolved]
  - Pruritus [Recovered/Resolved]
  - Abdominal pain [Not Recovered/Not Resolved]
  - Product dose omission issue [Unknown]
  - Back pain [Recovered/Resolved]
  - Fear of death [Recovering/Resolving]
  - Fear [Recovered/Resolved]
  - Malaise [Not Recovered/Not Resolved]
  - Depression [Not Recovered/Not Resolved]
  - Agitation [Recovered/Resolved]
  - Anxiety [Not Recovered/Not Resolved]
  - Insomnia [Recovered/Resolved]
  - Emotional disorder [Recovering/Resolving]
  - Feeling abnormal [Not Recovered/Not Resolved]
  - Pain in extremity [Not Recovered/Not Resolved]
  - Insomnia [Recovered/Resolved]
  - Dizziness [Recovered/Resolved]
  - Decreased appetite [Not Recovered/Not Resolved]
  - Immune system disorder [Not Recovered/Not Resolved]
  - Retching [Recovered/Resolved]
  - Dyspnoea [Not Recovered/Not Resolved]
  - Feeling abnormal [Recovered/Resolved]
  - Fatigue [Recovered/Resolved]
  - Palpitations [Recovered/Resolved]
  - Chest pain [Recovered/Resolved]
  - Physical product label issue [Unknown]

NARRATIVE: CASE EVENT DATE: 202001
